FAERS Safety Report 6886353-3 (Version None)
Quarter: 2010Q3

REPORT INFORMATION
  Report Type: 
  Country: None (occurrence: None)
  Receive Date: 20100729
  Receipt Date: 20080501
  Transmission Date: 20110219
  Serious: No
  Sender: FDA-Public Use
  Company Number: US-PFIZER INC-2008038020

PATIENT
  Sex: Female
  Weight: 56.8 kg

DRUGS (6)
  1. CELEBREX [Suspect]
     Indication: ARTHRALGIA
     Dates: start: 20080404, end: 20080416
  2. LIPITOR [Concomitant]
     Indication: BLOOD CHOLESTEROL INCREASED
  3. ACETAMINOPHEN [Concomitant]
     Indication: INSOMNIA
  4. CODEINE [Concomitant]
     Indication: INSOMNIA
  5. ADVAIR DISKUS 100/50 [Concomitant]
     Indication: INSOMNIA
  6. ANTIHYPERTENSIVES [Concomitant]
     Indication: HYPERTENSION

REACTIONS (5)
  - ABDOMINAL DISCOMFORT [None]
  - ABDOMINAL PAIN UPPER [None]
  - BLOOD PRESSURE DECREASED [None]
  - FEELING ABNORMAL [None]
  - JOINT STIFFNESS [None]
